FAERS Safety Report 25675030 (Version 1)
Quarter: 2025Q3

REPORT INFORMATION
  Report Type: Spontaneous
  Country: CA (occurrence: CA)
  Receive Date: 20250813
  Receipt Date: 20250813
  Transmission Date: 20251020
  Serious: Yes (Life-Threatening, Hospitalization, Disabling, Other)
  Sender: BRISTOL-MYERS SQUIBB COMPANY
  Company Number: CA-BRISTOL-MYERS SQUIBB COMPANY-2025-110257

PATIENT
  Age: 44 Year
  Sex: Female

DRUGS (111)
  1. TRIAMCINOLONE ACETONIDE [Suspect]
     Active Substance: TRIAMCINOLONE ACETONIDE
     Indication: Product used for unknown indication
     Route: 014
  2. ALENDRONATE SODIUM [Concomitant]
     Active Substance: ALENDRONATE SODIUM
     Indication: Rheumatoid arthritis
     Route: 048
  3. ALENDRONATE SODIUM [Concomitant]
     Active Substance: ALENDRONATE SODIUM
  4. CALCIUM CARBONATE [Concomitant]
     Active Substance: CALCIUM CARBONATE
     Indication: Product used for unknown indication
  5. CALCIUM CARBONATE [Concomitant]
     Active Substance: CALCIUM CARBONATE
  6. CELECOXIB [Concomitant]
     Active Substance: CELECOXIB
     Indication: Rheumatoid arthritis
  7. CELECOXIB [Concomitant]
     Active Substance: CELECOXIB
     Indication: Arthritis
     Route: 048
  8. CELECOXIB [Concomitant]
     Active Substance: CELECOXIB
  9. CELECOXIB [Concomitant]
     Active Substance: CELECOXIB
     Route: 048
  10. CELECOXIB [Concomitant]
     Active Substance: CELECOXIB
     Route: 048
  11. CELECOXIB [Concomitant]
     Active Substance: CELECOXIB
     Route: 048
  12. CELECOXIB [Concomitant]
     Active Substance: CELECOXIB
  13. DEXAMETHASONE [Concomitant]
     Active Substance: DEXAMETHASONE
     Indication: Rheumatoid arthritis
     Route: 048
  14. DICLOFENAC [Concomitant]
     Active Substance: DICLOFENAC
     Indication: Product used for unknown indication
     Route: 047
  15. DICLOFENAC [Concomitant]
     Active Substance: DICLOFENAC
  16. DICLOFENAC [Concomitant]
     Active Substance: DICLOFENAC
     Route: 047
  17. DICLOFENAC POTASSIUM [Concomitant]
     Active Substance: DICLOFENAC POTASSIUM
     Indication: Rheumatoid arthritis
  18. DICLOFENAC POTASSIUM [Concomitant]
     Active Substance: DICLOFENAC POTASSIUM
     Route: 048
  19. DICLOFENAC POTASSIUM [Concomitant]
     Active Substance: DICLOFENAC POTASSIUM
  20. DICLOFENAC POTASSIUM [Concomitant]
     Active Substance: DICLOFENAC POTASSIUM
  21. DILTIAZEM [Concomitant]
     Active Substance: DILTIAZEM
     Indication: Product used for unknown indication
  22. DILTIAZEM [Concomitant]
     Active Substance: DILTIAZEM
     Route: 042
  23. DILTIAZEM [Concomitant]
     Active Substance: DILTIAZEM
  24. ERELZI [Concomitant]
     Active Substance: ETANERCEPT-SZZS
     Indication: Rheumatoid arthritis
  25. ERELZI [Concomitant]
     Active Substance: ETANERCEPT-SZZS
     Route: 058
  26. ERELZI [Concomitant]
     Active Substance: ETANERCEPT-SZZS
  27. FOLIC ACID [Concomitant]
     Active Substance: FOLIC ACID
     Indication: Rheumatoid arthritis
  28. FOLIC ACID [Concomitant]
     Active Substance: FOLIC ACID
  29. FOLIC ACID [Concomitant]
     Active Substance: FOLIC ACID
     Route: 058
  30. FOLIC ACID [Concomitant]
     Active Substance: FOLIC ACID
  31. FOLIC ACID [Concomitant]
     Active Substance: FOLIC ACID
     Route: 048
  32. FOLIC ACID [Concomitant]
     Active Substance: FOLIC ACID
     Route: 048
  33. FOLIC ACID [Concomitant]
     Active Substance: FOLIC ACID
     Route: 048
  34. FOLIC ACID [Concomitant]
     Active Substance: FOLIC ACID
  35. FOLIC ACID [Concomitant]
     Active Substance: FOLIC ACID
     Route: 048
  36. FOLIC ACID [Concomitant]
     Active Substance: FOLIC ACID
  37. FOLIC ACID [Concomitant]
     Active Substance: FOLIC ACID
     Route: 048
  38. FOLIC ACID [Concomitant]
     Active Substance: FOLIC ACID
  39. FOLIC ACID [Concomitant]
     Active Substance: FOLIC ACID
  40. FOLIC ACID [Concomitant]
     Active Substance: FOLIC ACID
  41. FOLIC ACID [Concomitant]
     Active Substance: FOLIC ACID
  42. FOLIC ACID [Concomitant]
     Active Substance: FOLIC ACID
  43. FOLIC ACID [Concomitant]
     Active Substance: FOLIC ACID
  44. FOLIC ACID [Concomitant]
     Active Substance: FOLIC ACID
     Route: 058
  45. FOLIC ACID [Concomitant]
     Active Substance: FOLIC ACID
     Route: 048
  46. HYRIMOZ [Concomitant]
     Active Substance: ADALIMUMAB-ADAZ
     Indication: Rheumatoid arthritis
     Route: 058
  47. HYRIMOZ [Concomitant]
     Active Substance: ADALIMUMAB-ADAZ
     Indication: Psoriatic arthropathy
     Route: 058
  48. HYRIMOZ [Concomitant]
     Active Substance: ADALIMUMAB-ADAZ
  49. HYRIMOZ [Concomitant]
     Active Substance: ADALIMUMAB-ADAZ
  50. HYRIMOZ [Concomitant]
     Active Substance: ADALIMUMAB-ADAZ
     Route: 042
  51. METHOTREXATE [Concomitant]
     Active Substance: METHOTREXATE
     Indication: Rheumatoid arthritis
     Route: 058
  52. METHOTREXATE [Concomitant]
     Active Substance: METHOTREXATE
     Route: 048
  53. METHOTREXATE [Concomitant]
     Active Substance: METHOTREXATE
     Route: 048
  54. METHOTREXATE SODIUM [Concomitant]
     Active Substance: METHOTREXATE SODIUM
     Indication: Rheumatoid arthritis
  55. METHOTREXATE SODIUM [Concomitant]
     Active Substance: METHOTREXATE SODIUM
  56. METHOTREXATE SODIUM [Concomitant]
     Active Substance: METHOTREXATE SODIUM
  57. METHOTREXATE SODIUM [Concomitant]
     Active Substance: METHOTREXATE SODIUM
     Route: 058
  58. METHOTREXATE SODIUM [Concomitant]
     Active Substance: METHOTREXATE SODIUM
     Route: 042
  59. METHOTREXATE SODIUM [Concomitant]
     Active Substance: METHOTREXATE SODIUM
     Route: 013
  60. METHOTREXATE SODIUM [Concomitant]
     Active Substance: METHOTREXATE SODIUM
  61. METHOTREXATE SODIUM [Concomitant]
     Active Substance: METHOTREXATE SODIUM
  62. METHOTREXATE SODIUM [Concomitant]
     Active Substance: METHOTREXATE SODIUM
     Route: 013
  63. METHOTREXATE SODIUM [Concomitant]
     Active Substance: METHOTREXATE SODIUM
     Route: 013
  64. METHOTREXATE SODIUM [Concomitant]
     Active Substance: METHOTREXATE SODIUM
     Route: 058
  65. METHOTREXATE SODIUM [Concomitant]
     Active Substance: METHOTREXATE SODIUM
     Route: 058
  66. METHOTREXATE SODIUM [Concomitant]
     Active Substance: METHOTREXATE SODIUM
     Route: 013
  67. METHOTREXATE SODIUM [Concomitant]
     Active Substance: METHOTREXATE SODIUM
     Route: 058
  68. METHOTREXATE SODIUM [Concomitant]
     Active Substance: METHOTREXATE SODIUM
     Route: 058
  69. METHOTREXATE SODIUM [Concomitant]
     Active Substance: METHOTREXATE SODIUM
  70. METHOTREXATE SODIUM [Concomitant]
     Active Substance: METHOTREXATE SODIUM
  71. METHOTREXATE SODIUM [Concomitant]
     Active Substance: METHOTREXATE SODIUM
  72. METHOTREXATE SODIUM [Concomitant]
     Active Substance: METHOTREXATE SODIUM
     Route: 058
  73. METHOTREXATE SODIUM [Concomitant]
     Active Substance: METHOTREXATE SODIUM
     Route: 058
  74. METHOTREXATE SODIUM [Concomitant]
     Active Substance: METHOTREXATE SODIUM
  75. METHOTREXATE SODIUM [Concomitant]
     Active Substance: METHOTREXATE SODIUM
     Route: 013
  76. METHOTREXATE SODIUM [Concomitant]
     Active Substance: METHOTREXATE SODIUM
     Route: 058
  77. METHOTREXATE SODIUM [Concomitant]
     Active Substance: METHOTREXATE SODIUM
  78. METHOTREXATE SODIUM [Concomitant]
     Active Substance: METHOTREXATE SODIUM
     Route: 058
  79. OXYCODONE [Concomitant]
     Active Substance: OXYCODONE
     Indication: Product used for unknown indication
  80. OXYCODONE [Concomitant]
     Active Substance: OXYCODONE
     Route: 042
  81. OXYCODONE [Concomitant]
     Active Substance: OXYCODONE
  82. OXYCODONE HYDROCHLORIDE [Concomitant]
     Active Substance: OXYCODONE HYDROCHLORIDE
     Indication: Product used for unknown indication
  83. OXYCODONE HYDROCHLORIDE [Concomitant]
     Active Substance: OXYCODONE HYDROCHLORIDE
  84. PANTOPRAZOLE SODIUM [Concomitant]
     Active Substance: PANTOPRAZOLE SODIUM
     Indication: Product used for unknown indication
  85. PANTOPRAZOLE SODIUM [Concomitant]
     Active Substance: PANTOPRAZOLE SODIUM
     Route: 048
  86. PANTOPRAZOLE SODIUM [Concomitant]
     Active Substance: PANTOPRAZOLE SODIUM
     Route: 048
  87. PREDNISOLONE [Concomitant]
     Active Substance: PREDNISOLONE
     Indication: Product used for unknown indication
     Route: 016
  88. PREDNISOLONE [Concomitant]
     Active Substance: PREDNISOLONE
  89. RITUXIMAB [Concomitant]
     Active Substance: RITUXIMAB
     Indication: Rheumatoid arthritis
     Route: 042
  90. RITUXIMAB [Concomitant]
     Active Substance: RITUXIMAB
  91. RITUXIMAB [Concomitant]
     Active Substance: RITUXIMAB
  92. RITUXIMAB [Concomitant]
     Active Substance: RITUXIMAB
     Route: 041
  93. RITUXIMAB [Concomitant]
     Active Substance: RITUXIMAB
     Route: 058
  94. RITUXIMAB [Concomitant]
     Active Substance: RITUXIMAB
     Route: 042
  95. APREMILAST [Concomitant]
     Active Substance: APREMILAST
     Indication: Product used for unknown indication
  96. DICLOFENAC SODIUM [Concomitant]
     Active Substance: DICLOFENAC SODIUM
     Indication: Rheumatoid arthritis
     Route: 047
  97. DICLOFENAC SODIUM [Concomitant]
     Active Substance: DICLOFENAC SODIUM
     Indication: Osteoarthritis
     Route: 050
  98. DICLOFENAC SODIUM [Concomitant]
     Active Substance: DICLOFENAC SODIUM
     Indication: Inflammation
  99. HYDROCORTISONE [Concomitant]
     Active Substance: HYDROCORTISONE
     Indication: Product used for unknown indication
     Route: 003
  100. HYDROCORTISONE [Concomitant]
     Active Substance: HYDROCORTISONE
     Route: 058
  101. HYDROCORTISONE [Concomitant]
     Active Substance: HYDROCORTISONE
  102. HYDROCORTISONE [Concomitant]
     Active Substance: HYDROCORTISONE
     Route: 048
  103. HYDROCORTISONE [Concomitant]
     Active Substance: HYDROCORTISONE
     Route: 061
  104. LEFLUNOMIDE [Concomitant]
     Active Substance: LEFLUNOMIDE
     Indication: Rheumatoid arthritis
  105. LEFLUNOMIDE [Concomitant]
     Active Substance: LEFLUNOMIDE
     Route: 058
  106. LEFLUNOMIDE [Concomitant]
     Active Substance: LEFLUNOMIDE
     Route: 048
  107. LEFLUNOMIDE [Concomitant]
     Active Substance: LEFLUNOMIDE
     Route: 048
  108. MYCOPHENOLATE MOFETIL [Concomitant]
     Active Substance: MYCOPHENOLATE MOFETIL
     Indication: Product used for unknown indication
  109. PREGABALIN [Concomitant]
     Active Substance: PREGABALIN
     Indication: Product used for unknown indication
  110. VITAMIN C [Concomitant]
     Active Substance: ASCORBIC ACID
     Indication: Product used for unknown indication
     Route: 016
  111. VITAMIN C [Concomitant]
     Active Substance: ASCORBIC ACID

REACTIONS (7)
  - Drug ineffective [Unknown]
  - Inappropriate schedule of product administration [Unknown]
  - Inflammation [Unknown]
  - Infusion related reaction [Unknown]
  - Intentional product misuse [Unknown]
  - Hospitalisation [Unknown]
  - Adverse event [Unknown]
